FAERS Safety Report 19384252 (Version 1)
Quarter: 2021Q2

REPORT INFORMATION
  Report Type: Spontaneous
  Country: US (occurrence: US)
  Receive Date: 20210607
  Receipt Date: 20210607
  Transmission Date: 20210717
  Serious: No
  Sender: FDA-Public Use
  Company Number: US-PERRIGO-20US008676

PATIENT
  Age: 67 Year
  Sex: Male
  Weight: 86.17 kg

DRUGS (7)
  1. ELDERBERRY                         /01651601/ [Concomitant]
     Indication: SUPPLEMENTATION THERAPY
     Dosage: UNK
     Route: 065
     Dates: start: 2020
  2. MINERAL SUPPLEMENTS [Concomitant]
     Active Substance: MINERALS
     Indication: SUPPLEMENTATION THERAPY
     Dosage: UNK
     Route: 065
     Dates: start: 2020
  3. MINOXIDIL. [Suspect]
     Active Substance: MINOXIDIL
     Indication: ALOPECIA
     Dosage: 1 CAPFUL, BID
     Route: 061
     Dates: start: 20200522, end: 20200611
  4. ROGAINE [Suspect]
     Active Substance: MINOXIDIL
     Indication: HYPOTRICHOSIS
     Dosage: UNKNOWN, UNKNOWN
     Route: 061
     Dates: start: 2020
  5. HERBAL EXTRACT NOS [Concomitant]
     Active Substance: HERBALS
     Indication: SUPPLEMENTATION THERAPY
     Dosage: UNK
     Route: 065
     Dates: start: 2020
  6. BIOTIN [Concomitant]
     Active Substance: BIOTIN
     Indication: SUPPLEMENTATION THERAPY
     Dosage: UNK
     Route: 065
     Dates: start: 2020
  7. FINASTERIDE. [Suspect]
     Active Substance: FINASTERIDE
     Indication: ALOPECIA
     Dosage: UNKNOWN, QD
     Route: 048
     Dates: start: 20200522, end: 20200611

REACTIONS (3)
  - Pruritus [Recovering/Resolving]
  - Incorrect dose administered [Recovering/Resolving]
  - Condition aggravated [Not Recovered/Not Resolved]

NARRATIVE: CASE EVENT DATE: 20200606
